FAERS Safety Report 19419083 (Version 7)
Quarter: 2021Q3

REPORT INFORMATION
  Report Type: Report from Study
  Country: CN (occurrence: CN)
  Receive Date: 20210615
  Receipt Date: 20210909
  Transmission Date: 20211014
  Serious: Yes (Hospitalization)
  Sender: FDA-Public Use
  Company Number: CN-ROCHE-2845997

PATIENT
  Age: 58 Year
  Sex: Male
  Weight: 64 kg

DRUGS (16)
  1. ESOMEPRAZOLE. [Concomitant]
     Active Substance: ESOMEPRAZOLE MAGNESIUM
     Dates: start: 20210409
  2. PALONOSETRON HYDROCHLORIDE. [Concomitant]
     Active Substance: PALONOSETRON HYDROCHLORIDE
     Indication: VOMITING
     Dates: start: 20210427, end: 20210428
  3. POLYENE PHOSPHATIDYLCHOLINE [Concomitant]
     Active Substance: PHOSPHOLIPID
     Dates: start: 20210520
  4. AMLODIPINE BENZENESULFONATE [Concomitant]
     Active Substance: AMLODIPINE BESYLATE
     Dates: start: 20210519, end: 202107
  5. BEVACIZUMAB. [Suspect]
     Active Substance: BEVACIZUMAB
     Indication: HEPATOCELLULAR CARCINOMA
     Dosage: ON 27/APR/2021, HE RECEIVED MOST RECENT DOSE OF BEVACIZUMAB (975 MG) PRIOR TO ONSET OF SERIOUS ADVER
     Route: 042
     Dates: start: 20210316
  6. PALONOSETRON HYDROCHLORIDE. [Concomitant]
     Active Substance: PALONOSETRON HYDROCHLORIDE
     Dates: start: 20210630, end: 20210701
  7. MAGNESIUM ISOGLYCYRRHIZINATE [Concomitant]
     Active Substance: MAGNESIUM ISOGLYCYRRHIZINATE
     Indication: HEPATITIS C
     Dates: start: 20210427, end: 20210428
  8. OMEPRAZOLE SODIUM [Concomitant]
     Active Substance: OMEPRAZOLE SODIUM
     Indication: GASTRITIS EROSIVE
     Dates: start: 20210427, end: 20210428
  9. OMEPRAZOLE SODIUM [Concomitant]
     Active Substance: OMEPRAZOLE SODIUM
     Dates: start: 20210519, end: 20210519
  10. ATEZOLIZUMAB. [Suspect]
     Active Substance: ATEZOLIZUMAB
     Indication: HEPATOCELLULAR CARCINOMA
     Dosage: ON 27/APR/2021, HE RECEIVED MOST RECENT DOSE OF ATEZOLIZUMAB (1200 MG) PRIOR TO ONSET OF SERIOUS ADV
     Route: 041
     Dates: start: 20210316
  11. PALONOSETRON HYDROCHLORIDE. [Concomitant]
     Active Substance: PALONOSETRON HYDROCHLORIDE
     Dates: start: 20210519, end: 20210519
  12. PROMEPRAZOLE [Concomitant]
     Indication: GASTRITIS EROSIVE
     Dosage: PROMEPRAZOLE SODIUM INJECTION
     Dates: start: 20210630, end: 20210701
  13. MAGNESIUM ISOGLYCYRRHIZINATE [Concomitant]
     Active Substance: MAGNESIUM ISOGLYCYRRHIZINATE
     Dates: start: 20210608, end: 20210609
  14. POLYENE PHOSPHATIDYLCHOLINE [Concomitant]
     Active Substance: PHOSPHOLIPID
     Dates: start: 20210409, end: 20210520
  15. AMLODIPINE BENZENESULFONATE [Concomitant]
     Active Substance: AMLODIPINE BESYLATE
     Indication: HYPERTENSION
     Dates: start: 20210430, end: 20210503
  16. OMEPRAZOLE SODIUM [Concomitant]
     Active Substance: OMEPRAZOLE SODIUM
     Dates: start: 20210608, end: 20210609

REACTIONS (2)
  - Alanine aminotransferase increased [Recovered/Resolved]
  - Aspartate aminotransferase increased [Recovered/Resolved]

NARRATIVE: CASE EVENT DATE: 20210518
